FAERS Safety Report 9850052 (Version 1)
Quarter: 2014Q1

REPORT INFORMATION
  Report Type: Spontaneous
  Country: US (occurrence: None)
  Receive Date: 20140127
  Receipt Date: 20140127
  Transmission Date: 20141002
  Serious: Yes (Hospitalization)
  Sender: FDA-Public Use
  Company Number: None

PATIENT
  Age: 69 Year
  Sex: Female
  Weight: 83 kg

DRUGS (12)
  1. BENDAMUSTINE HYDROCHLORIDE [Suspect]
  2. PS-341 (BORTEZOMIB; VELCADE) [Suspect]
  3. RITUXIMAB [Suspect]
  4. AMBIEN [Concomitant]
  5. BETHAMETHASONE VALERATE [Concomitant]
  6. DDAVP [Concomitant]
  7. DIOVAN HCT [Concomitant]
  8. DITROPAN XL [Concomitant]
  9. ERGOCALCIFEROL [Concomitant]
  10. METOPROLOL SUCCINATE SR [Concomitant]
  11. MIRALAX [Concomitant]
  12. NITROFURANTOIN MACROCRYSTAL [Concomitant]

REACTIONS (9)
  - Vomiting [None]
  - Tremor [None]
  - Feeling cold [None]
  - Pyrexia [None]
  - Dehydration [None]
  - Dysphagia [None]
  - Neutropenia [None]
  - Anaemia [None]
  - Lymphoma [None]
